FAERS Safety Report 5971204-1 (Version None)
Quarter: 2008Q4

REPORT INFORMATION
  Report Type: 
  Country: None (occurrence: None)
  Receive Date: 20081128
  Receipt Date: 20081117
  Transmission Date: 20090506
  Serious: Yes (Hospitalization, Other)
  Sender: FDA-Public Use
  Company Number: US-ELI_LILLY_AND_COMPANY-US200811003658

PATIENT
  Sex: Female

DRUGS (5)
  1. EVISTA [Suspect]
     Dosage: 60 MG, UNKNOWN
     Route: 065
     Dates: start: 20021125
  2. LISINOPRIL [Concomitant]
     Indication: HYPERTENSION
     Dosage: 2.5 MG, UNKNOWN
     Route: 065
  3. TOPROL-XL [Concomitant]
     Indication: HYPERTENSION
     Dosage: 12.5 MG, UNKNOWN
     Route: 065
  4. LIPITOR [Concomitant]
     Indication: BLOOD CHOLESTEROL
     Dosage: UNK, UNKNOWN
     Route: 065
  5. PRAVACHOL [Concomitant]
     Indication: BLOOD CHOLESTEROL
     Dosage: 40 MG, UNKNOWN
     Route: 065

REACTIONS (3)
  - ATRIAL FIBRILLATION [None]
  - INCONTINENCE [None]
  - UTERINE PROLAPSE [None]
